FAERS Safety Report 5823040-4 (Version None)
Quarter: 2008Q3

REPORT INFORMATION
  Report Type: 
  Country: None (occurrence: None)
  Receive Date: 20080725
  Receipt Date: 20070827
  Transmission Date: 20090109
  Serious: No
  Sender: FDA-Public Use
  Company Number: US-AMGEN-KDL222157

PATIENT
  Sex: Female
  Weight: 50.8 kg

DRUGS (5)
  1. PROCRIT [Suspect]
     Indication: RENAL FAILURE CHRONIC
     Dates: start: 20050401
  2. ASPIRIN [Suspect]
  3. NORVASC [Concomitant]
     Dates: start: 20050101
  4. COZAAR [Concomitant]
     Dates: start: 20050101
  5. NEXIUM [Concomitant]
     Dates: start: 20050101

REACTIONS (3)
  - CONTUSION [None]
  - PRURITUS GENERALISED [None]
  - SKIN HAEMORRHAGE [None]
